FAERS Safety Report 6110636-8 (Version None)
Quarter: 2009Q1

REPORT INFORMATION
  Report Type: 
  Country: None (occurrence: None)
  Receive Date: 20090306
  Receipt Date: 20090303
  Transmission Date: 20090719
  Serious: Yes (Hospitalization)
  Sender: FDA-Public Use
  Company Number: 1000005032

PATIENT
  Age: 59 Year
  Sex: Male

DRUGS (5)
  1. BYSTOLIC [Suspect]
     Indication: HYPERTENSION
     Dosage: 20 MG (10 MG, 2 IN 1 D), ORAL
     Route: 048
     Dates: start: 20090225
  2. CIALIS [Suspect]
     Indication: ERECTILE DYSFUNCTION
     Dosage: (10 MG), ORAL
     Route: 048
  3. AVALIDE [Concomitant]
  4. CARDURA [Concomitant]
  5. HYPERLIPIDEMIA MEDICATIONS (NOS) [Concomitant]

REACTIONS (2)
  - DRUG INTERACTION [None]
  - PULMONARY OEDEMA [None]
